FAERS Safety Report 10442387 (Version 1)
Quarter: 2014Q3

REPORT INFORMATION
  Report Type: Spontaneous
  Country: BR (occurrence: BR)
  Receive Date: 20140909
  Receipt Date: 20140909
  Transmission Date: 20150326
  Serious: Yes (Other)
  Sender: FDA-Public Use
  Company Number: BR-ABBVIE-14K-020-1280159-00

PATIENT
  Sex: Female
  Weight: 73 kg

DRUGS (7)
  1. HUMIRA [Suspect]
     Active Substance: ADALIMUMAB
     Indication: CROHN^S DISEASE
     Route: 058
     Dates: start: 2009, end: 2012
  2. AMITRIPTYLINE [Concomitant]
     Active Substance: AMITRIPTYLINE
     Indication: ARTHRITIS
     Route: 048
     Dates: start: 2012
  3. MESALAZINE [Concomitant]
     Active Substance: MESALAMINE
     Indication: CROHN^S DISEASE
     Route: 048
     Dates: start: 2012
  4. MESALAZINE [Concomitant]
     Active Substance: MESALAMINE
     Dosage: AT NIGHT
     Route: 054
     Dates: start: 2012
  5. CYCLOBENZAPRINE [Concomitant]
     Active Substance: CYCLOBENZAPRINE
     Indication: ARTHRITIS
     Dosage: AT NIGHT
     Route: 048
     Dates: start: 2012
  6. DEPAKENE [Concomitant]
     Active Substance: VALPROIC ACID
     Indication: NEUROCYSTICERCOSIS
     Route: 048
     Dates: start: 2002
  7. PREDNISONE. [Concomitant]
     Active Substance: PREDNISONE
     Indication: ARTHRITIS
     Route: 048
     Dates: start: 2012

REACTIONS (5)
  - Medical device discomfort [Recovering/Resolving]
  - Renal colic [Recovered/Resolved]
  - Serum ferritin decreased [Unknown]
  - Aortic disorder [Unknown]
  - Nephrolithiasis [Recovered/Resolved]

NARRATIVE: CASE EVENT DATE: 2014
